FAERS Safety Report 10209341 (Version 2)
Quarter: 2014Q2

REPORT INFORMATION
  Report Type: Report from Study
  Country: AU (occurrence: AU)
  Receive Date: 20140531
  Receipt Date: 20140603
  Transmission Date: 20141212
  Serious: Yes (Hospitalization)
  Sender: FDA-Public Use
  Company Number: AU-ROCHE-1409227

PATIENT
  Age: 44 Year
  Sex: Male
  Weight: 103.9 kg

DRUGS (6)
  1. OBINUTUZUMAB [Suspect]
     Indication: DIFFUSE LARGE B-CELL LYMPHOMA
     Dosage: VOLUME OF LAST DOSE TAKEN: 250 ML AT CONCENTRATION 4 MG/ML?DATE OF MOST RECENT DOSE PRIOR TO SAE: 15
     Route: 042
     Dates: start: 20140424
  2. CYCLOPHOSPHAMIDE [Suspect]
     Indication: DIFFUSE LARGE B-CELL LYMPHOMA
     Dosage: DOSE OF LAST CYCLOPHOSPHAMIDE TAKEN: 1650 MG?DATE OF MOST RECENT DOSE OF CYCLOPHOSPHAMIDE PRIOR TO A
     Route: 042
     Dates: start: 20140424
  3. DOXORUBICIN [Suspect]
     Indication: DIFFUSE LARGE B-CELL LYMPHOMA
     Dosage: DOSE OF LAST DOXORUBICIN TAKEN: 110 MG?DATE OF MOST RECENT DOSE OF DOXORUBICIN PRIOR TO AE ONSET:15/
     Route: 042
     Dates: start: 20140424
  4. VINCRISTINE [Suspect]
     Indication: DIFFUSE LARGE B-CELL LYMPHOMA
     Dosage: DOSE OF LAST VINCRISTINE TAKEN: 2 MG?DATE OF MOST RECENT DOSE OF VINCRISTINE PRIOR TO AE ONSET: 15/M
     Route: 041
     Dates: start: 20140424
  5. PREDNISOLONE [Suspect]
     Indication: DIFFUSE LARGE B-CELL LYMPHOMA
     Dosage: DOSE OF LAST PREDNISOLONE TAKEN: 100 MG?DATE OF MOST RECENT DOSE OF PREDNISOLONE PRIOR TO AE ONSET:1
     Route: 048
     Dates: start: 20140424
  6. FILGRASTIM [Concomitant]
     Indication: NEUTROPENIA
     Route: 065
     Dates: start: 20140506, end: 20140507

REACTIONS (1)
  - Febrile neutropenia [Not Recovered/Not Resolved]
